APPROVED DRUG PRODUCT: MULTAQ
Active Ingredient: DRONEDARONE HYDROCHLORIDE
Strength: EQ 400MG BASE
Dosage Form/Route: TABLET;ORAL
Application: N022425 | Product #001 | TE Code: AB
Applicant: SANOFI AVENTIS US LLC
Approved: Jul 1, 2009 | RLD: Yes | RS: Yes | Type: RX

PATENTS:
Patent 9107900 | Expires: Apr 16, 2029
Patent 9107900 | Expires: Apr 16, 2029
Patent 8410167 | Expires: Apr 16, 2029
Patent 8602215 | Expires: Jun 30, 2031
Patent 8410167 | Expires: Apr 16, 2029